FAERS Safety Report 15723135 (Version 1)
Quarter: 2018Q4

REPORT INFORMATION
  Report Type: Spontaneous
  Country: US (occurrence: US)
  Receive Date: 20181214
  Receipt Date: 20181214
  Transmission Date: 20190205
  Serious: Yes (Death)
  Sender: FDA-Public Use
  Company Number: None

PATIENT
  Sex: Female

DRUGS (4)
  1. ZELBORAF [Concomitant]
     Active Substance: VEMURAFENIB
  2. TAFINLAR [Concomitant]
     Active Substance: DABRAFENIB MESYLATE
  3. COTELLIC [Suspect]
     Active Substance: COBIMETINIB
     Indication: PRODUCT USED FOR UNKNOWN INDICATION
     Dosage: ?          OTHER FREQUENCY:QD X21, OFF 7;?
     Route: 048
     Dates: start: 20181103
  4. MEKINIST [Concomitant]
     Active Substance: TRAMETINIB DIMETHYL SULFOXIDE

REACTIONS (1)
  - Death [None]
